FAERS Safety Report 24988721 (Version 2)
Quarter: 2025Q1

REPORT INFORMATION
  Report Type: Report from Study
  Country: EG (occurrence: EG)
  Receive Date: 20250220
  Receipt Date: 20250303
  Transmission Date: 20250408
  Serious: Yes (Death)
  Sender: ROCHE
  Company Number: EG-ROCHE-10000212228

PATIENT
  Age: 77 Year
  Sex: Male

DRUGS (1)
  1. TECENTRIQ [Suspect]
     Active Substance: ATEZOLIZUMAB
     Indication: Hepatocellular carcinoma
     Route: 042
     Dates: start: 20241224, end: 20241224

REACTIONS (1)
  - Death [Fatal]

NARRATIVE: CASE EVENT DATE: 20250207
